FAERS Safety Report 6031355-2 (Version None)
Quarter: 2009Q1

REPORT INFORMATION
  Report Type: 
  Country: None (occurrence: None)
  Receive Date: 20090108
  Receipt Date: 20090105
  Transmission Date: 20090719
  Serious: Yes (Hospitalization, Other)
  Sender: FDA-Public Use
  Company Number: BR-BAYER-200910413LA

PATIENT
  Age: 27 Year
  Sex: Female

DRUGS (1)
  1. YASMIN [Suspect]
     Indication: ORAL CONTRACEPTION
     Route: 048
     Dates: start: 20040101, end: 20040601

REACTIONS (4)
  - AMNESIA [None]
  - CEREBRAL VENOUS THROMBOSIS [None]
  - HEADACHE [None]
  - VISUAL IMPAIRMENT [None]
